FAERS Safety Report 9946682 (Version 1)
Quarter: 2014Q1

REPORT INFORMATION
  Report Type: Report from Study
  Country: US (occurrence: US)
  Receive Date: 20140303
  Receipt Date: 20140303
  Transmission Date: 20141002
  Serious: No
  Sender: FDA-Public Use
  Company Number: US-ABBVIE-13P-163-1063165-00

PATIENT
  Age: 25 Year
  Sex: Male

DRUGS (4)
  1. HUMIRA [Suspect]
     Indication: COLITIS ULCERATIVE
     Dates: start: 20130111, end: 20130111
  2. HUMIRA [Suspect]
     Dates: start: 20130125, end: 20130308
  3. UNNAMED STEROID [Suspect]
     Indication: COLITIS ULCERATIVE
     Dosage: 60 MG DOWN TO 10 MG
  4. PREDNISONE [Concomitant]
     Indication: COLITIS ULCERATIVE
     Dosage: 10 MG

REACTIONS (2)
  - Acne [Not Recovered/Not Resolved]
  - Overdose [Not Recovered/Not Resolved]
